FAERS Safety Report 5677039-1 (Version None)
Quarter: 2008Q1

REPORT INFORMATION
  Report Type: 
  Country: None (occurrence: None)
  Receive Date: 20080318
  Receipt Date: 20080307
  Transmission Date: 20080703
  Serious: Yes (Hospitalization)
  Sender: FDA-Public Use
  Company Number: TPA2008A00201

PATIENT
  Age: 64 Year
  Sex: Female
  Weight: 97.5234 kg

DRUGS (10)
  1. ACTOS [Suspect]
     Indication: TYPE 2 DIABETES MELLITUS
     Dosage: 30 MG, 1 IN 1 D, PER ORAL
     Route: 048
  2. NORVASC [Concomitant]
  3. ZOCOR [Concomitant]
  4. TOPROL-XL [Concomitant]
  5. PREVACID [Concomitant]
  6. PROZAC [Concomitant]
  7. OCUVITE (ASCORBIC ACID, TOCOPHEROL, RETINOL) (TABLETS) [Concomitant]
  8. HUMULIN N [Concomitant]
  9. HUMULIN R [Concomitant]
  10. MULTIPLE PAIN MEDICATIONS (ANALGESICS) [Concomitant]

REACTIONS (9)
  - DIABETES MELLITUS INADEQUATE CONTROL [None]
  - DRUG INEFFECTIVE [None]
  - FALL [None]
  - HEART RATE INCREASED [None]
  - IATROGENIC INJURY [None]
  - ROTATOR CUFF SYNDROME [None]
  - SCAR [None]
  - UPPER LIMB FRACTURE [None]
  - WRIST FRACTURE [None]
